FAERS Safety Report 5255088-5 (Version None)
Quarter: 2007Q1

REPORT INFORMATION
  Report Type: 
  Country: None (occurrence: None)
  Receive Date: 20070228
  Receipt Date: 20070220
  Transmission Date: 20070707
  Serious: Yes (Hospitalization)
  Sender: FDA-Public Use
  Company Number: 2007BI003870

PATIENT
  Sex: Female
  Weight: 72.5755 kg

DRUGS (2)
  1. ZEVALIN [Suspect]
     Indication: DRUG USE FOR UNKNOWN INDICATION
     Dosage: 1X; IV
     Route: 042
     Dates: start: 20070213, end: 20070213
  2. RITUXAN [Concomitant]

REACTIONS (1)
  - CARDIO-RESPIRATORY ARREST [None]
